FAERS Safety Report 18150171 (Version 1)
Quarter: 2020Q3

REPORT INFORMATION
  Report Type: Spontaneous
  Country: US (occurrence: US)
  Receive Date: 20200814
  Receipt Date: 20200814
  Transmission Date: 20201103
  Serious: No
  Sender: FDA-Public Use
  Company Number: US-BAUSCH-BL-2020-022775

PATIENT
  Sex: Female

DRUGS (1)
  1. XIFAXAN [Suspect]
     Active Substance: RIFAXIMIN
     Indication: IRRITABLE BOWEL SYNDROME
     Dosage: STARTED 3 YEARS AGO
     Route: 048
     Dates: start: 2017

REACTIONS (3)
  - Irritable bowel syndrome [Not Recovered/Not Resolved]
  - Product prescribing error [Unknown]
  - Disease recurrence [Unknown]
